FAERS Safety Report 7277555-5 (Version None)
Quarter: 2011Q1

REPORT INFORMATION
  Report Type: 
  Country: None (occurrence: None)
  Receive Date: 20110202
  Receipt Date: 20110202
  Transmission Date: 20110831
  Serious: Yes (Other)
  Sender: FDA-Public Use
  Company Number: None

PATIENT
  Age: 17 Year
  Sex: Female
  Weight: 48.7 kg

DRUGS (1)
  1. HYDROMORPHONE HCL [Suspect]
     Route: 042

REACTIONS (1)
  - PRURITUS [None]
